FAERS Safety Report 4617849-2 (Version None)
Quarter: 2005Q1

REPORT INFORMATION
  Report Type: 
  Country: None (occurrence: None)
  Receive Date: 20050324
  Receipt Date: 20050112
  Transmission Date: 20050727
  Serious: Yes (Life-Threatening, Hospitalization, Congenital Anomaly)
  Sender: FDA-Public Use
  Company Number: NL-GLAXOSMITHKLINE-B0364988A

PATIENT

DRUGS (1)
  1. PAROXETINE HCL [Suspect]

REACTIONS (6)
  - CONGENITAL BLADDER ANOMALY [None]
  - DRUG EXPOSURE DURING PREGNANCY [None]
  - FEEDING PROBLEM IN NEWBORN [None]
  - GASTROINTESTINAL DISORDER CONGENITAL [None]
  - GASTROINTESTINAL MALFORMATION [None]
  - GASTROINTESTINAL MOTILITY DISORDER [None]
